FAERS Safety Report 16647691 (Version 3)
Quarter: 2019Q4

REPORT INFORMATION
  Report Type: Spontaneous
  Country: US (occurrence: US)
  Receive Date: 20190730
  Receipt Date: 20191014
  Transmission Date: 20200122
  Serious: Yes (Other)
  Sender: FDA-Public Use
  Company Number: US-PFIZER INC-2019322697

PATIENT
  Age: 76 Year
  Sex: Female
  Weight: 73.47 kg

DRUGS (3)
  1. IBRANCE [Suspect]
     Active Substance: PALBOCICLIB
     Indication: BREAST CANCER
     Dosage: 100 MG, CYCLIC, (DAILY FOR 21 DAYS ON /7 DAYS OFF)
     Route: 048
     Dates: start: 20190103
  2. IBRANCE [Suspect]
     Active Substance: PALBOCICLIB
     Indication: BREAST CANCER METASTATIC
     Dosage: 100 MG, CYCLIC [D 1-21, Q 28 DAYS]
     Route: 048
     Dates: start: 20190104, end: 201909
  3. FASLODEX [Concomitant]
     Active Substance: FULVESTRANT

REACTIONS (2)
  - Neoplasm progression [Unknown]
  - Constipation [Unknown]

NARRATIVE: CASE EVENT DATE: 20190724
